FAERS Safety Report 26182143 (Version 1)
Quarter: 2025Q4

REPORT INFORMATION
  Report Type: Report from Study
  Country: US (occurrence: US)
  Receive Date: 20251221
  Receipt Date: 20251221
  Transmission Date: 20260117
  Serious: Yes (Other)
  Sender: ABBVIE
  Company Number: US-ABBVIE-6594802

PATIENT
  Age: 56 Year
  Sex: Male

DRUGS (1)
  1. CREON [Suspect]
     Active Substance: PANCRELIPASE AMYLASE\PANCRELIPASE LIPASE\PANCRELIPASE PROTEASE
     Indication: Product used for unknown indication
     Route: 048
     Dates: start: 20210909

REACTIONS (7)
  - Myocardial infarction [Not Recovered/Not Resolved]
  - Cervical vertebral fracture [Recovering/Resolving]
  - Cerebrovascular accident [Recovering/Resolving]
  - Rib fracture [Recovered/Resolved]
  - Pain [Unknown]
  - Fall [Unknown]
  - Speech disorder [Unknown]

NARRATIVE: CASE EVENT DATE: 20230801
